FAERS Safety Report 9293827 (Version 1)
Quarter: 2013Q2

REPORT INFORMATION
  Report Type: Spontaneous
  Country: FR (occurrence: FR)
  Receive Date: 20130516
  Receipt Date: 20130516
  Transmission Date: 20140414
  Serious: Yes (Hospitalization)
  Sender: FDA-Public Use
  Company Number: FR-GILEAD-2013-0075111

PATIENT
  Age: 44 Year
  Sex: Female

DRUGS (27)
  1. TRUVADA [Suspect]
     Indication: HIV INFECTION CDC CATEGORY C3
     Route: 048
  2. INEXIUM /01479302/ [Suspect]
     Dosage: UNK
     Route: 048
     Dates: start: 20130225, end: 20130322
  3. BACTRIM [Suspect]
     Route: 048
  4. KALETRA [Suspect]
     Route: 048
  5. ACUPAN [Concomitant]
  6. SKENAN [Concomitant]
  7. SEVREDOL [Concomitant]
  8. PAROXETINE [Concomitant]
  9. NICOBION [Concomitant]
  10. VITAMIN B1 [Concomitant]
  11. VITAMIN B6 [Concomitant]
  12. VITAMIN PP [Concomitant]
  13. AZINC [Concomitant]
  14. LYRICA [Concomitant]
  15. AZADOSE [Concomitant]
  16. PARACETAMOL [Concomitant]
  17. PARIET [Concomitant]
  18. CREON [Concomitant]
  19. DUPHALAC                           /00163401/ [Concomitant]
  20. LAROXYL [Concomitant]
  21. SELENIUM [Concomitant]
  22. SERESTA [Concomitant]
  23. THERALENE [Concomitant]
  24. ATROPINE [Concomitant]
  25. DEPAKINE CHRONO [Concomitant]
  26. LEDERFOLINE [Concomitant]
  27. NICORETTE                          /01033301/ [Concomitant]

REACTIONS (2)
  - Pancytopenia [Recovered/Resolved]
  - Neutropenia [Recovering/Resolving]
